FAERS Safety Report 8523409-3 (Version None)
Quarter: 2012Q3

REPORT INFORMATION
  Report Type: 
  Country: None (occurrence: None)
  Receive Date: 20120720
  Receipt Date: 20101022
  Transmission Date: 20120928
  Serious: Yes (Other)
  Sender: FDA-Public Use
  Company Number: US-BAYER-201018556NA

PATIENT
  Age: 23 Year
  Sex: Female
  Weight: 79.545 kg

DRUGS (6)
  1. YAZ [Suspect]
     Route: 048
  2. ALEVE [Concomitant]
     Route: 065
  3. LORTAB [Concomitant]
     Indication: PAIN
     Dosage: 15 MG (DAILY DOSE), TID, ORAL
     Route: 048
  4. MIDOL [Concomitant]
     Indication: PRODUCT USED FOR UNKNOWN INDICATION
     Route: 065
  5. ZOFRAN [Concomitant]
     Indication: PRODUCT USED FOR UNKNOWN INDICATION
     Dosage: 24 MG (DAILY DOSE), TID, ORAL
     Route: 048
  6. YASMIN [Suspect]
     Route: 048
     Dates: start: 20010101

REACTIONS (4)
  - GALLBLADDER DISORDER [None]
  - ENDOMETRIOSIS [None]
  - BILIARY COLIC [None]
  - PAIN [None]
